FAERS Safety Report 4673033-8 (Version None)
Quarter: 2005Q2

REPORT INFORMATION
  Report Type: 
  Country: None (occurrence: None)
  Receive Date: 20050524
  Receipt Date: 20050510
  Transmission Date: 20051028
  Serious: Yes (Other)
  Sender: FDA-Public Use
  Company Number: HQWYE629311MAY05

PATIENT
  Age: 76 Year
  Sex: Female

DRUGS (6)
  1. CORDARONE [Suspect]
     Dosage: ORAL/STARTED 3-4 YEARS BEFORE ADVERSE REACTION
     Route: 048
  2. WARFARIN SODIUM [Concomitant]
  3. COVERSYL (PERINDOPRIL) [Concomitant]
  4. LASIX [Concomitant]
  5. OMEPRAZOLE [Concomitant]
  6. IRON W/FOLIC ACID (FERROUS SULFATE/FOLIC ACID) [Concomitant]

REACTIONS (1)
  - LINEAR IGA DISEASE [None]
